FAERS Safety Report 5421225-2 (Version None)
Quarter: 2007Q3

REPORT INFORMATION
  Report Type: 
  Country: None (occurrence: None)
  Receive Date: 20070816
  Receipt Date: 20070809
  Transmission Date: 20080115
  Serious: Yes (Hospitalization)
  Sender: FDA-Public Use
  Company Number: 2007BI011703

PATIENT
  Age: 49 Year
  Sex: Male
  Weight: 77.1115 kg

DRUGS (8)
  1. AVONEX [Suspect]
     Indication: MULTIPLE SCLEROSIS
     Dosage: 30 UG;QW;IM
     Route: 030
     Dates: start: 20000101, end: 20050101
  2. AVONEX [Suspect]
     Indication: MULTIPLE SCLEROSIS
     Dosage: 30 UG;QW;IM
     Route: 030
     Dates: start: 20050901
  3. TEGRETOL [Concomitant]
  4. BACLOFEN [Concomitant]
  5. CHOLESTEROL DRUG [Concomitant]
  6. ZYPREXA [Concomitant]
  7. KLONOPIN [Concomitant]
  8. DETROL [Concomitant]

REACTIONS (23)
  - APALLIC SYNDROME [None]
  - APHASIA [None]
  - ASTHENIA [None]
  - CEREBELLAR SYNDROME [None]
  - CONSTIPATION [None]
  - DEHYDRATION [None]
  - DISEASE PROGRESSION [None]
  - DYSARTHRIA [None]
  - FAECAL INCONTINENCE [None]
  - FALL [None]
  - FEELING ABNORMAL [None]
  - MICTURITION URGENCY [None]
  - MOBILITY DECREASED [None]
  - MOVEMENT DISORDER [None]
  - MULTIPLE SCLEROSIS RELAPSE [None]
  - MUSCLE SPASTICITY [None]
  - MUSCULAR WEAKNESS [None]
  - OPHTHALMOPLEGIA [None]
  - PYREXIA [None]
  - STARING [None]
  - URINARY INCONTINENCE [None]
  - VIRAL INFECTION [None]
  - VOMITING [None]
